FAERS Safety Report 11156038 (Version 1)
Quarter: 2015Q2

REPORT INFORMATION
  Report Type: Spontaneous
  Country: FR (occurrence: FR)
  Receive Date: 20150602
  Receipt Date: 20150602
  Transmission Date: 20150821
  Serious: Yes (Life-Threatening)
  Sender: FDA-Public Use
  Company Number: FR-SA-2015SA073619

PATIENT
  Age: 54 Year
  Sex: Female

DRUGS (1)
  1. ARAVA [Suspect]
     Active Substance: LEFLUNOMIDE
     Indication: RHEUMATIC DISORDER
     Route: 048
     Dates: start: 2013

REACTIONS (1)
  - Metaplastic breast carcinoma [Not Recovered/Not Resolved]

NARRATIVE: CASE EVENT DATE: 201503
